FAERS Safety Report 8487517-8 (Version None)
Quarter: 2012Q3

REPORT INFORMATION
  Report Type: 
  Country: None (occurrence: None)
  Receive Date: 20120705
  Receipt Date: 20120702
  Transmission Date: 20120928
  Serious: Yes (Life-Threatening, Hospitalization)
  Sender: FDA-Public Use
  Company Number: US-BAYER-2012-065587

PATIENT
  Age: 57 Year
  Sex: Female
  Weight: 65.76 kg

DRUGS (8)
  1. LEVETIRACETAM [Concomitant]
     Dosage: 250 MG, UNK
  2. VITAMIN D [Concomitant]
     Dosage: 400 U, UNK
  3. BETASERON [Suspect]
     Dosage: 0.25 MG, QOD
     Route: 058
  4. PROZAC [Concomitant]
     Dosage: 20 MG, UNK
  5. MAGNESIUM OXIDE [Concomitant]
     Dosage: 400 MG, UNK
  6. ASPIRIN [Concomitant]
     Dosage: 324 MG, UNK
  7. MULTI-VITAMIN [Concomitant]
  8. ZOCOR [Concomitant]
     Dosage: 40 MG, UNK

REACTIONS (1)
  - INTRACRANIAL ANEURYSM [None]
